FAERS Safety Report 24955482 (Version 1)
Quarter: 2025Q1

REPORT INFORMATION
  Report Type: Spontaneous
  Country: US (occurrence: None)
  Receive Date: 20250210
  Receipt Date: 20250210
  Transmission Date: 20250409
  Serious: Yes (Disabling, Other)
  Sender: FDA-CTU
  Company Number: None

PATIENT
  Age: 30 Year
  Sex: Female
  Weight: 56.25 kg

DRUGS (2)
  1. TRIAMCINOLONE ACETONIDE [Suspect]
     Active Substance: TRIAMCINOLONE ACETONIDE
     Indication: Eczema
     Dosage: FREQUENCY : TWICE A DAY;?
     Route: 061
     Dates: start: 20180410, end: 20220201
  2. TRIAMCINOLONE ACETONIDE [Suspect]
     Active Substance: TRIAMCINOLONE ACETONIDE
     Indication: Eczema
     Dosage: FREQUENCY : TWICE A DAY;?
     Route: 061
     Dates: start: 20180410, end: 20220201

REACTIONS (9)
  - Skin atrophy [None]
  - Drug ineffective [None]
  - Pruritus [None]
  - Staphylococcal infection [None]
  - Erythema [None]
  - Dry skin [None]
  - Skin exfoliation [None]
  - Skin weeping [None]
  - Withdrawal syndrome [None]

NARRATIVE: CASE EVENT DATE: 20220201
